FAERS Safety Report 5360459-2 (Version None)
Quarter: 2007Q2

REPORT INFORMATION
  Report Type: 
  Country: None (occurrence: None)
  Receive Date: 20070530
  Receipt Date: 20070129
  Transmission Date: 20071010
  Serious: No
  Sender: FDA-Public Use
  Company Number: 2007PV029214

PATIENT
  Age: 64 Year
  Sex: Female
  Weight: 107.9561 kg

DRUGS (2)
  1. BYETTA [Suspect]
     Indication: DIABETES MELLITUS NON-INSULIN-DEPENDENT
     Dosage: 10 MCG; 5 MCG : BID; SC
     Route: 058
     Dates: start: 20070102, end: 20070101
  2. BYETTA [Suspect]
     Indication: DIABETES MELLITUS NON-INSULIN-DEPENDENT
     Dosage: 10 MCG; 5 MCG : BID; SC
     Route: 058
     Dates: start: 20070118

REACTIONS (3)
  - INJECTION SITE BRUISING [None]
  - INJECTION SITE PAIN [None]
  - WEIGHT DECREASED [None]
